FAERS Safety Report 4625356-6 (Version None)
Quarter: 2005Q2

REPORT INFORMATION
  Report Type: 
  Country: None (occurrence: None)
  Receive Date: 20050401
  Receipt Date: 20050324
  Transmission Date: 20051028
  Serious: Yes (Disabling)
  Sender: FDA-Public Use
  Company Number: JP-GLAXOSMITHKLINE-B0375989A

PATIENT
  Age: 85 Year
  Sex: Female

DRUGS (6)
  1. ZOVIRAX [Suspect]
     Indication: HERPES ZOSTER
     Dosage: 250MG THREE TIMES PER DAY
     Route: 042
     Dates: start: 20050315, end: 20050321
  2. PONTAL [Concomitant]
     Route: 048
  3. JUVELA NICOTINATE [Concomitant]
     Route: 048
  4. PINATOS [Concomitant]
     Route: 048
  5. CALSLOT [Concomitant]
     Route: 048
  6. EPAND [Concomitant]
     Route: 048

REACTIONS (1)
  - HYPERTENSION [None]
